FAERS Safety Report 6128177-0 (Version None)
Quarter: 2009Q1

REPORT INFORMATION
  Report Type: 
  Country: None (occurrence: None)
  Receive Date: 20090319
  Receipt Date: 20090310
  Transmission Date: 20090719
  Serious: Yes (Life-Threatening)
  Sender: FDA-Public Use
  Company Number: JHP200900079

PATIENT
  Age: 47 Year
  Sex: Female

DRUGS (2)
  1. ADRENALIN IN OIL INJ [Suspect]
     Indication: RESUSCITATION
  2. ANTIVIRALS NOS [Concomitant]

REACTIONS (4)
  - ARTERIOSPASM CORONARY [None]
  - ATRIOVENTRICULAR BLOCK COMPLETE [None]
  - ELECTROMECHANICAL DISSOCIATION [None]
  - VENTRICULAR TACHYARRHYTHMIA [None]
